FAERS Safety Report 8588007-4 (Version None)
Quarter: 2012Q3

REPORT INFORMATION
  Report Type: 
  Country: None (occurrence: None)
  Receive Date: 20120813
  Receipt Date: 20120808
  Transmission Date: 20120928
  Serious: No
  Sender: FDA-Public Use
  Company Number: US-009507513-1208USA004122

PATIENT

DRUGS (2)
  1. PROZAC [Concomitant]
  2. PEG-INTRON [Suspect]
     Indication: HEPATITIS C
     Dosage: 120 MICROGRAM, QW
     Dates: start: 20120717

REACTIONS (3)
  - PRODUCT QUALITY ISSUE [None]
  - NAUSEA [None]
  - ANXIETY [None]
